FAERS Safety Report 9607783 (Version 2)
Quarter: 2013Q4

REPORT INFORMATION
  Report Type: Report from Study
  Country: CA (occurrence: CA)
  Receive Date: 20131009
  Receipt Date: 20131009
  Transmission Date: 20140711
  Serious: Yes (Hospitalization, Other)
  Sender: FDA-Public Use
  Company Number: CA-JNJFOC-20130805159

PATIENT
  Age: 18 Year
  Sex: Female
  Weight: 58.3 kg

DRUGS (1)
  1. REMICADE [Suspect]
     Indication: COLITIS ULCERATIVE
     Dosage: 6/52
     Route: 042
     Dates: start: 20130318

REACTIONS (3)
  - Kidney infection [Unknown]
  - Erythema nodosum [Unknown]
  - Granuloma annulare [Recovering/Resolving]
